FAERS Safety Report 15208153 (Version 1)
Quarter: 2018Q3

REPORT INFORMATION
  Report Type: Spontaneous
  Country: DE (occurrence: DE)
  Receive Date: 20180727
  Receipt Date: 20180727
  Transmission Date: 20181010
  Serious: Yes (Other)
  Sender: FDA-Public Use
  Company Number: PHHY2018DE053834

PATIENT
  Age: 31 Year
  Sex: Male
  Weight: 88 kg

DRUGS (3)
  1. DOXYCYCLINE. [Suspect]
     Active Substance: DOXYCYCLINE
     Indication: ENDOMETRITIS
     Dosage: 200 MG, UNK
     Route: 048
  2. AZITHROMYCIN ANHYDROUS. [Concomitant]
     Active Substance: AZITHROMYCIN ANHYDROUS
     Indication: ENDOMETRITIS
     Dosage: 1.5 G, UNK
     Route: 048
  3. CEFTRIAXON [Concomitant]
     Active Substance: CEFTRIAXONE
     Indication: ENDOMETRITIS
     Dosage: 1 G, UNK
     Route: 042

REACTIONS (5)
  - Apathy [Unknown]
  - Suicidal ideation [Unknown]
  - Feeling of despair [Unknown]
  - Depressed mood [Unknown]
  - Anxiety [Unknown]

NARRATIVE: CASE EVENT DATE: 20180514
